FAERS Safety Report 12047915 (Version 1)
Quarter: 2016Q1

REPORT INFORMATION
  Report Type: Spontaneous
  Country: FR (occurrence: FR)
  Receive Date: 20160208
  Receipt Date: 20160208
  Transmission Date: 20160526
  Serious: Yes (Hospitalization, Other)
  Sender: FDA-Public Use
  Company Number: FR-BRISTOL-MYERS SQUIBB COMPANY-BMS-2016-007960

PATIENT
  Age: 62 Year
  Sex: Male

DRUGS (8)
  1. AMLODIPINE [Suspect]
     Active Substance: AMLODIPINE BESYLATE
     Indication: POISONING
     Dosage: 10 MG, UNK
     Route: 065
     Dates: start: 20151222
  2. BISOPROLOL FUMARATE. [Suspect]
     Active Substance: BISOPROLOL FUMARATE
     Indication: POISONING
     Dosage: 10 MG, UNK
     Route: 065
  3. TAHOR [Suspect]
     Active Substance: ATORVASTATIN CALCIUM
     Indication: POISONING
     Dosage: 20 MG, UNK
     Route: 065
     Dates: start: 20151222
  4. KALEORID LP [Suspect]
     Active Substance: POTASSIUM CHLORIDE
     Indication: POISONING
     Dosage: 1000 MG, UNK
     Route: 065
     Dates: start: 20151222
  5. ELIQUIS [Suspect]
     Active Substance: APIXABAN
     Indication: POISONING
     Dosage: UNK
     Route: 065
     Dates: start: 20151222
  6. PARACETAMOL [Suspect]
     Active Substance: ACETAMINOPHEN
     Indication: POISONING
     Dosage: 4 G, UNK
     Route: 065
     Dates: start: 20151222
  7. ESIDREX [Suspect]
     Active Substance: HYDROCHLOROTHIAZIDE
     Indication: POISONING
     Dosage: UNK
     Route: 065
     Dates: start: 20151222
  8. CLOMIPRAMINE HYDROCHLORIDE. [Suspect]
     Active Substance: CLOMIPRAMINE HYDROCHLORIDE
     Indication: POISONING
     Dosage: UNK
     Route: 065
     Dates: start: 20151222

REACTIONS (5)
  - Hypokalaemia [Recovered/Resolved]
  - Intentional overdose [Recovered/Resolved]
  - Cardiogenic shock [Recovered/Resolved]
  - Shock [Recovered/Resolved]
  - Hypotension [Recovered/Resolved]

NARRATIVE: CASE EVENT DATE: 20151222
